FAERS Safety Report 24326436 (Version 2)
Quarter: 2024Q3

REPORT INFORMATION
  Report Type: Spontaneous
  Country: US (occurrence: US)
  Receive Date: 20240917
  Receipt Date: 20240917
  Transmission Date: 20241017
  Serious: No
  Sender: ABBVIE
  Company Number: US-ABBVIE-5919672

PATIENT

DRUGS (2)
  1. HUMIRA [Suspect]
     Active Substance: ADALIMUMAB
     Indication: Product used for unknown indication
     Route: 058
  2. RINVOQ [Suspect]
     Active Substance: UPADACITINIB
     Indication: Product used for unknown indication
     Route: 048

REACTIONS (6)
  - Nail growth abnormal [Unknown]
  - Gastrointestinal disorder [Unknown]
  - Spinal disorder [Unknown]
  - Ocular hyperaemia [Unknown]
  - Dry eye [Unknown]
  - Foreign body sensation in eyes [Unknown]
